FAERS Safety Report 17766988 (Version 1)
Quarter: 2020Q2

REPORT INFORMATION
  Report Type: Spontaneous
  Country: US (occurrence: US)
  Receive Date: 20200511
  Receipt Date: 20200511
  Transmission Date: 20200714
  Serious: Yes (Other)
  Sender: FDA-Public Use
  Company Number: US-BAYER-2020-074484

PATIENT
  Age: 83 Year
  Sex: Female

DRUGS (3)
  1. NIMODIPINE. [Suspect]
     Active Substance: NIMODIPINE
  2. ACETYLSALICYLIC ACID [Suspect]
     Active Substance: ASPIRIN
  3. CLOPIDOGREL [Suspect]
     Active Substance: CLOPIDOGREL BISULFATE

REACTIONS (5)
  - Labelled drug-drug interaction medication error [None]
  - Atrioventricular block [None]
  - Subarachnoid haemorrhage [None]
  - Nodal arrhythmia [None]
  - Hypotension [None]
